FAERS Safety Report 5664660-X (Version None)
Quarter: 2008Q1

REPORT INFORMATION
  Report Type: 
  Country: None (occurrence: None)
  Receive Date: 20080314
  Receipt Date: 20080305
  Transmission Date: 20080703
  Serious: Yes (Hospitalization)
  Sender: FDA-Public Use
  Company Number: JP-ROCHE-546348

PATIENT
  Age: 48 Year
  Sex: Male
  Weight: 64 kg

DRUGS (9)
  1. CELLCEPT [Suspect]
     Route: 048
     Dates: start: 20020101, end: 20071005
  2. NEORAL [Concomitant]
     Route: 048
     Dates: start: 19990129
  3. PREDONINE [Concomitant]
     Route: 048
     Dates: start: 19990129, end: 20071001
  4. PREDONINE [Concomitant]
     Route: 048
     Dates: start: 20071001
  5. FAMOTIDINE [Concomitant]
     Route: 048
     Dates: start: 19990101, end: 20071005
  6. SIMVASTATIN [Concomitant]
     Route: 048
     Dates: start: 19990101
  7. DAONIL [Concomitant]
     Route: 048
     Dates: start: 20010101
  8. DIART [Concomitant]
     Route: 048
     Dates: start: 20060801
  9. BLOPRESS [Concomitant]
     Route: 048

REACTIONS (6)
  - ANAEMIA [None]
  - DISEASE PROGRESSION [None]
  - ENTERITIS [None]
  - LARGE INTESTINAL ULCER [None]
  - MELAENA [None]
  - OVERDOSE [None]
